FAERS Safety Report 9074565 (Version 1)
Quarter: 2013Q1

REPORT INFORMATION
  Report Type: Report from Study
  Country: US (occurrence: US)
  Receive Date: 20130128
  Receipt Date: 20130128
  Transmission Date: 20140127
  Serious: No
  Sender: FDA-Public Use
  Company Number: US-ABBOTT-12P-163-0916822-00

PATIENT
  Age: 81 Year
  Sex: Female

DRUGS (9)
  1. HUMIRA 40 MG/0.8 ML PEN [Suspect]
     Indication: RHEUMATOID ARTHRITIS
     Dates: start: 20120316
  2. HYDROXYCHLOROQUINE [Concomitant]
     Indication: RHEUMATOID ARTHRITIS
     Dosage: 40 MG DAILY
     Route: 048
  3. METHOTREXATE [Concomitant]
     Indication: RHEUMATOID ARTHRITIS
     Dosage: 4 PILLS WEEKLY
  4. PRESERVISION [Concomitant]
     Indication: MACULAR DEGENERATION
     Dosage: DAILY
     Route: 048
  5. B COMPLEX [Concomitant]
     Indication: VITAMIN SUPPLEMENTATION
  6. CITALOPRAM [Concomitant]
     Indication: ANXIETY
     Route: 048
  7. SIMVASTATIN [Concomitant]
     Indication: BLOOD CHOLESTEROL INCREASED
     Dosage: DAILY
     Route: 048
  8. FISH OIL [Concomitant]
     Indication: SUPPLEMENTATION THERAPY
  9. SPIRIVA INHALER [Concomitant]
     Indication: PRODUCT USED FOR UNKNOWN INDICATION

REACTIONS (1)
  - Injection site pain [Recovered/Resolved]
